FAERS Safety Report 9718708 (Version 1)
Quarter: 2013Q4

REPORT INFORMATION
  Report Type: Not Available
  Country: US (occurrence: US)
  Receive Date: 20131125
  Receipt Date: 20131125
  Transmission Date: 20140711
  Serious: No
  Sender: FDA-Public Use
  Company Number: US-H. LUNDBECK A/S-DKLU1092669

PATIENT
  Sex: Female

DRUGS (1)
  1. ONFI [Suspect]
     Indication: LENNOX-GASTAUT SYNDROME

REACTIONS (2)
  - Eyelid disorder [Unknown]
  - Head titubation [Unknown]
